FAERS Safety Report 6147460-6 (Version None)
Quarter: 2009Q2

REPORT INFORMATION
  Report Type: 
  Country: None (occurrence: None)
  Receive Date: 20090402
  Receipt Date: 20090318
  Transmission Date: 20091009
  Serious: Yes (Death, Hospitalization, Congenital Anomaly, Other)
  Sender: FDA-Public Use
  Company Number: 230266J08BRA

PATIENT
  Sex: Female
  Weight: 3.8 kg

DRUGS (3)
  1. REBIF [Suspect]
     Indication: RELAPSING-REMITTING MULTIPLE SCLEROSIS
     Dosage: 22 MCG, 3 IN 1 WEEKS, TRANSPLACENTAL
     Route: 064
     Dates: start: 20020201, end: 20080504
  2. SERTRALINE CHLORIDE (SERTRALINE HYDROCHLORIDE) [Concomitant]
  3. MANTADAN (AMANTADINE HYDROCHLORIDE) [Concomitant]

REACTIONS (9)
  - CARDIAC ARREST [None]
  - CLEFT LIP [None]
  - CLEFT PALATE [None]
  - CONGENITAL ANOMALY [None]
  - DRUG EXPOSURE DURING PREGNANCY [None]
  - HYDROCEPHALUS [None]
  - NEONATAL DISORDER [None]
  - PREGNANCY [None]
  - RESPIRATORY ARREST [None]
